FAERS Safety Report 7995652-3 (Version None)
Quarter: 2011Q4

REPORT INFORMATION
  Report Type: 
  Country: None (occurrence: None)
  Receive Date: 20111220
  Receipt Date: 20110421
  Transmission Date: 20120403
  Serious: No
  Sender: FDA-Public Use
  Company Number: US-MYLANLABS-2011S1008411

PATIENT
  Sex: Male

DRUGS (1)
  1. SOTRADECOL [Suspect]

REACTIONS (3)
  - ACCIDENTAL EXPOSURE [None]
  - OEDEMA PERIPHERAL [None]
  - SKIN DISCOLOURATION [None]
